FAERS Safety Report 24857394 (Version 1)
Quarter: 2025Q1

REPORT INFORMATION
  Report Type: Report from Study
  Country: NL (occurrence: NL)
  Receive Date: 20250117
  Receipt Date: 20250117
  Transmission Date: 20250408
  Serious: Yes (Death, Hospitalization, Other)
  Sender: BIOVITRUM
  Company Number: NL-AstraZeneca-CH-00785583A

PATIENT
  Age: 32 Week
  Sex: Male
  Weight: 7.08 kg

DRUGS (1)
  1. SYNAGIS [Suspect]
     Active Substance: PALIVIZUMAB
     Indication: Respiratory syncytial virus immunisation
     Route: 030
     Dates: start: 20240923

REACTIONS (3)
  - Dyspnoea [Fatal]
  - Syncope [Fatal]
  - Respiratory syncytial virus infection [Unknown]

NARRATIVE: CASE EVENT DATE: 20241231
